FAERS Safety Report 9123996 (Version 1)
Quarter: 2013Q1

REPORT INFORMATION
  Report Type: Spontaneous
  Country: US (occurrence: US)
  Receive Date: 20130227
  Receipt Date: 20130227
  Transmission Date: 20140127
  Serious: Yes (Other)
  Sender: FDA-Public Use
  Company Number: US-ABBOTT-13P-163-1053653-00

PATIENT
  Age: 63 None
  Sex: Male
  Weight: 95.34 kg

DRUGS (6)
  1. ANDROGEL [Suspect]
     Indication: BLOOD TESTOSTERONE DECREASED
     Dates: start: 201112
  2. HYDROCODONE [Suspect]
     Indication: MUSCULOSKELETAL PAIN
     Dosage: ALMOST 2 MONTHS
     Dates: start: 201210, end: 201211
  3. HYDROCODONE [Suspect]
     Indication: SHOULDER OPERATION
  4. SIMVASTATIN [Concomitant]
     Indication: BLOOD CHOLESTEROL INCREASED
  5. VITAMIN D3 [Concomitant]
     Indication: VITAMIN SUPPLEMENTATION
  6. FISH OIL [Concomitant]
     Indication: PRODUCT USED FOR UNKNOWN INDICATION

REACTIONS (9)
  - Rotator cuff syndrome [Recovering/Resolving]
  - Rotator cuff syndrome [Unknown]
  - Blood testosterone abnormal [Not Recovered/Not Resolved]
  - Blood testosterone abnormal [Not Recovered/Not Resolved]
  - Insomnia [Recovered/Resolved]
  - Depressed mood [Recovering/Resolving]
  - Initial insomnia [Recovered/Resolved]
  - Middle insomnia [Recovered/Resolved]
  - Middle insomnia [Recovered/Resolved]
